FAERS Safety Report 5404679-7 (Version None)
Quarter: 2007Q3

REPORT INFORMATION
  Report Type: 
  Country: None (occurrence: None)
  Receive Date: 20070731
  Receipt Date: 20051114
  Transmission Date: 20080115
  Serious: Yes (Life-Threatening, Other)
  Sender: FDA-Public Use
  Company Number: S07-CAN-03244-01

PATIENT
  Age: 78 Year
  Sex: Male

DRUGS (8)
  1. MEMANTINE HCL [Suspect]
     Indication: DEMENTIA ALZHEIMER'S TYPE
     Dosage: 10 MG BID PO
     Route: 048
     Dates: start: 20050401, end: 20051001
  2. QUETIAPINE FUMARATE [Concomitant]
  3. TRAZODONE HCL [Concomitant]
  4. LOXAPINE [Concomitant]
  5. ASPIRIN [Concomitant]
  6. RABEPRAZOLE SODIUM [Concomitant]
  7. TEGRETOL [Concomitant]
  8. ACETAMINOPHEN [Concomitant]

REACTIONS (7)
  - ANAEMIA [None]
  - BLOOD DISORDER [None]
  - CHRONIC LYMPHOCYTIC LEUKAEMIA [None]
  - CONDITION AGGRAVATED [None]
  - FLUID RETENTION [None]
  - HEPATOCELLULAR DAMAGE [None]
  - SPLENOMEGALY [None]
